FAERS Safety Report 9497602 (Version 1)
Quarter: 2013Q3

REPORT INFORMATION
  Report Type: Spontaneous
  Country: US (occurrence: None)
  Receive Date: 20130903
  Receipt Date: 20130903
  Transmission Date: 20140515
  Serious: Yes (Disabling)
  Sender: FDA-Public Use
  Company Number: None

PATIENT
  Age: 43 Year
  Sex: Female
  Weight: 72.58 kg

DRUGS (1)
  1. AMANTADINE [Suspect]
     Indication: FATIGUE
     Route: 048
     Dates: start: 20120202, end: 20120211

REACTIONS (6)
  - Muscle twitching [None]
  - Vision blurred [None]
  - Eye pain [None]
  - Major depression [None]
  - Suicidal behaviour [None]
  - Hallucination, auditory [None]
